FAERS Safety Report 21499939 (Version 3)
Quarter: 2022Q4

REPORT INFORMATION
  Report Type: Spontaneous
  Country: JP (occurrence: JP)
  Receive Date: 20221024
  Receipt Date: 20221128
  Transmission Date: 20230113
  Serious: Yes (Life-Threatening, Other)
  Sender: FDA-Public Use
  Company Number: JP-PFIZER INC-PV202200087903

PATIENT
  Age: 89 Year
  Sex: Male
  Weight: 49 kg

DRUGS (5)
  1. VYNDAQEL [Suspect]
     Active Substance: TAFAMIDIS MEGLUMINE
     Indication: Cardiac amyloidosis
     Dosage: 80 MG, 1X/DAY
     Route: 048
     Dates: start: 20220525, end: 20221011
  2. FUROSEMIDE [Concomitant]
     Active Substance: FUROSEMIDE
     Dosage: 50 MG, 2X/DAY
     Route: 048
     Dates: start: 20190708
  3. SAMSCA [Concomitant]
     Active Substance: TOLVAPTAN
     Dosage: 7.5 MG, 1X/DAY
     Route: 048
     Dates: start: 20190708
  4. LEVOTHYROXINE SODIUM [Concomitant]
     Active Substance: LEVOTHYROXINE SODIUM
     Dosage: 25 UG, 1X/DAY
     Route: 048
     Dates: start: 20220817
  5. EDOXABAN TOSYLATE [Concomitant]
     Active Substance: EDOXABAN TOSYLATE
     Dosage: 15 MG, 1X/DAY
     Route: 048
     Dates: start: 20190708

REACTIONS (1)
  - Cardiac failure chronic [Unknown]

NARRATIVE: CASE EVENT DATE: 20221014
